FAERS Safety Report 15365803 (Version 1)
Quarter: 2018Q3

REPORT INFORMATION
  Report Type: Report from Study
  Country: PH (occurrence: PH)
  Receive Date: 20180910
  Receipt Date: 20180910
  Transmission Date: 20181010
  Serious: Yes (Death, Hospitalization)
  Sender: FDA-Public Use
  Company Number: PH-PFIZER INC-2018306240

PATIENT
  Age: 58 Year
  Sex: Female
  Weight: 50 kg

DRUGS (3)
  1. BOSULIF [Suspect]
     Active Substance: BOSUTINIB MONOHYDRATE
     Indication: CHRONIC MYELOID LEUKAEMIA
     Dosage: 500 MG, DAILY
     Route: 048
     Dates: start: 20171202, end: 20180620
  2. CILOSTAZOL. [Concomitant]
     Active Substance: CILOSTAZOL
     Indication: PERIPHERAL ARTERIAL OCCLUSIVE DISEASE
     Dosage: 100 MG, 2X/DAY
     Route: 048
     Dates: start: 20170728
  3. SULODEXIDE [Concomitant]
     Active Substance: SULODEXIDE
     Indication: PERIPHERAL ARTERIAL OCCLUSIVE DISEASE
     Dosage: 250 MG, 2X/DAY
     Route: 048
     Dates: start: 20170728

REACTIONS (3)
  - Septic shock [Fatal]
  - Cardiomyopathy [Recovering/Resolving]
  - Pneumonia [Fatal]

NARRATIVE: CASE EVENT DATE: 20180620
